FAERS Safety Report 15633003 (Version 1)
Quarter: 2018Q4

REPORT INFORMATION
  Report Type: Spontaneous
  Country: US (occurrence: US)
  Receive Date: 20181116
  Receipt Date: 20181116
  Transmission Date: 20190205
  Serious: No
  Sender: FDA-Public Use
  Company Number: None

PATIENT
  Age: 63 Year
  Weight: 53 kg

DRUGS (2)
  1. OCTREOTIDE. [Suspect]
     Active Substance: OCTREOTIDE
     Indication: DIARRHOEA
     Route: 058
     Dates: start: 20181012
  2. OCTREOTIDE. [Suspect]
     Active Substance: OCTREOTIDE
     Indication: NEOPLASM
     Route: 058
     Dates: start: 20181012

REACTIONS (3)
  - Accidental overdose [None]
  - Therapy cessation [None]
  - Incorrect dose administered [None]

NARRATIVE: CASE EVENT DATE: 20181012
